FAERS Safety Report 8624118-2 (Version None)
Quarter: 2012Q3

REPORT INFORMATION
  Report Type: 
  Country: None (occurrence: None)
  Receive Date: 20120824
  Receipt Date: 20120824
  Transmission Date: 20120928
  Serious: No
  Sender: FDA-Public Use
  Company Number: None

PATIENT
  Sex: Male

DRUGS (1)
  1. ERIVEDGE [Suspect]
     Dosage: 50MG, DAILY, PO
     Route: 048
     Dates: start: 20120802

REACTIONS (1)
  - AMNESIA [None]
